FAERS Safety Report 9210067 (Version 1)
Quarter: 2013Q2

REPORT INFORMATION
  Report Type: Spontaneous
  Country: KR (occurrence: KR)
  Receive Date: 20130404
  Receipt Date: 20130404
  Transmission Date: 20140414
  Serious: Yes (Hospitalization)
  Sender: FDA-Public Use
  Company Number: KR-EISAI INC-E2020-12179-SPO-KR

PATIENT
  Age: 69 Year
  Sex: Male

DRUGS (2)
  1. DONEPEZIL [Suspect]
     Indication: COGNITIVE DISORDER
     Route: 048
     Dates: start: 2010, end: 2010
  2. RISPERIDONE [Interacting]
     Indication: DELUSIONAL DISORDER, UNSPECIFIED TYPE
     Dosage: 2 MG/DAY
     Dates: start: 201007, end: 2010

REACTIONS (2)
  - Parkinsonism [Recovered/Resolved]
  - Drug interaction [Recovered/Resolved]
